FAERS Safety Report 6803368-1 (Version None)
Quarter: 2010Q2

REPORT INFORMATION
  Report Type: 
  Country: None (occurrence: None)
  Receive Date: 20100628
  Receipt Date: 20100617
  Transmission Date: 20101027
  Serious: Yes (Hospitalization)
  Sender: FDA-Public Use
  Company Number: JP-PFIZER INC-2010060157

PATIENT
  Age: 61 Year
  Sex: Male
  Weight: 72 kg

DRUGS (12)
  1. SUNITINIB MALATE [Suspect]
     Indication: HEPATIC NEOPLASM MALIGNANT
     Dosage: 12.5 MG, 3X/DAY
     Route: 048
     Dates: start: 20090827, end: 20100327
  2. URSO 250 [Concomitant]
     Dosage: UNK
     Route: 048
     Dates: start: 19950101
  3. TAKEPRON [Concomitant]
     Dosage: UNK
     Route: 048
     Dates: start: 19950101
  4. MENATETRENONE [Concomitant]
     Dosage: UNK
     Route: 048
     Dates: start: 20060101
  5. LIVACT [Concomitant]
     Dosage: UNK
     Route: 048
     Dates: start: 20060101
  6. MYSLEE [Concomitant]
     Dosage: UNK
     Route: 048
     Dates: start: 20060101
  7. ANTEBATE [Concomitant]
     Dosage: UNK
     Dates: start: 19890101
  8. WHITE SOFT PARAFFIN [Concomitant]
     Route: 061
     Dates: end: 20090908
  9. GLYCYRRHIZIN/GLYCINE/L-CYSTEINE HYDROCHLORIDE [Concomitant]
     Dosage: UNK
     Route: 042
     Dates: start: 19950101
  10. UREPEARL [Concomitant]
     Dosage: UNK
     Route: 061
     Dates: start: 20090908
  11. RINDERON-VG [Concomitant]
     Dosage: UNK
     Route: 061
     Dates: start: 20090908
  12. ADALAT CC [Concomitant]
     Dosage: UNK
     Route: 048
     Dates: start: 20090909

REACTIONS (2)
  - HYPOAESTHESIA [None]
  - MUSCULOSKELETAL PAIN [None]
